FAERS Safety Report 7091837-1 (Version None)
Quarter: 2010Q4

REPORT INFORMATION
  Report Type: 
  Country: None (occurrence: None)
  Receive Date: 20101109
  Receipt Date: 20101027
  Transmission Date: 20110411
  Serious: Yes (Hospitalization)
  Sender: FDA-Public Use
  Company Number: US-ELI_LILLY_AND_COMPANY-US201010007031

PATIENT
  Age: 43 Year

DRUGS (6)
  1. CYMBALTA [Suspect]
     Indication: TRIGEMINAL NEURALGIA
     Dosage: 30 MG, DAILY (1/D)
     Dates: start: 20100301
  2. CYMBALTA [Suspect]
     Dosage: 60 MG, DAILY (1/D)
  3. CYMBALTA [Suspect]
     Dosage: UNK, UNKNOWN
     Dates: end: 20101001
  4. TRILEPTAL [Concomitant]
     Dates: end: 20100401
  5. KEPPRA /USA/ [Concomitant]
     Dates: end: 20100401
  6. SINGULAIR [Concomitant]

REACTIONS (9)
  - DIZZINESS [None]
  - DRUG WITHDRAWAL SYNDROME [None]
  - HYPERHIDROSIS [None]
  - HYPONATRAEMIA [None]
  - OFF LABEL USE [None]
  - PARAESTHESIA [None]
  - PERIPHERAL NERVE DECOMPRESSION [None]
  - PRURITUS [None]
  - VERTIGO [None]
